FAERS Safety Report 5822287-0 (Version None)
Quarter: 2008Q3

REPORT INFORMATION
  Report Type: 
  Country: None (occurrence: None)
  Receive Date: 20080725
  Receipt Date: 20080513
  Transmission Date: 20090109
  Serious: No
  Sender: FDA-Public Use
  Company Number: US-AMGEN-KDL279551

PATIENT
  Sex: Male

DRUGS (14)
  1. PROCRIT [Suspect]
     Indication: HIV INFECTION
  2. SYNTHROID [Concomitant]
  3. CIPRO [Concomitant]
  4. NADOLOL [Concomitant]
  5. MAGNESIUM OXIDE [Concomitant]
  6. FENTANYL-100 [Concomitant]
     Route: 062
  7. CERTICAN [Concomitant]
  8. OMEPRAZOLE [Concomitant]
  9. PROMETHAZINE [Concomitant]
  10. LEVOCARNITINE [Concomitant]
  11. CARNICOR [Concomitant]
  12. CALCIUM WITH VITAMIN D [Concomitant]
  13. LACTOSE [Concomitant]
  14. FUROSEMIDE [Concomitant]

REACTIONS (1)
  - HOSPICE CARE [None]
